FAERS Safety Report 9358926 (Version 2)
Quarter: 2013Q3

REPORT INFORMATION
  Report Type: Spontaneous
  Country: GB (occurrence: None)
  Receive Date: 20130617
  Receipt Date: 20130806
  Transmission Date: 20140515
  Serious: Yes (Hospitalization)
  Sender: FDA-Public Use
  Company Number: AMAG201300094

PATIENT
  Age: 82 Year
  Sex: Male

DRUGS (2)
  1. RIENSO [Suspect]
     Indication: IMAGING PROCEDURE
     Dosage: 9.3 ML, SINGLE (279 MG), INTRAVENOUS
     Route: 042
     Dates: start: 20130113, end: 20130113
  2. BUSCOPAN (HYOSCINE BUTYLBROMIDE) [Concomitant]

REACTIONS (2)
  - Aortic aneurysm [None]
  - Condition aggravated [None]
